FAERS Safety Report 6228894-8 (Version None)
Quarter: 2009Q2

REPORT INFORMATION
  Report Type: 
  Country: None (occurrence: None)
  Receive Date: 20090615
  Receipt Date: 20090605
  Transmission Date: 20091009
  Serious: Yes (Other)
  Sender: FDA-Public Use
  Company Number: AR-ROCHE-636539

PATIENT
  Sex: Male
  Weight: 68 kg

DRUGS (2)
  1. ROACCUTAN [Suspect]
     Indication: ACNE
     Route: 048
     Dates: start: 20000101, end: 20000101
  2. ROACCUTAN [Suspect]
     Route: 048
     Dates: start: 20080301, end: 20080701

REACTIONS (1)
  - NEOPLASM [None]
